FAERS Safety Report 21619005 (Version 2)
Quarter: 2022Q4

REPORT INFORMATION
  Report Type: Spontaneous
  Country: JP (occurrence: JP)
  Receive Date: 20221120
  Receipt Date: 20221211
  Transmission Date: 20230113
  Serious: Yes (Hospitalization, Other)
  Sender: FDA-Public Use
  Company Number: JP-NBI-J202219141BIPI

PATIENT
  Age: 9 Decade
  Sex: Male

DRUGS (7)
  1. LINAGLIPTIN [Suspect]
     Active Substance: LINAGLIPTIN
     Indication: Diabetes mellitus
     Route: 048
  2. ENALAPRIL [Concomitant]
     Active Substance: ENALAPRIL
     Indication: Product used for unknown indication
     Route: 048
  3. PIMOBENDAN [Concomitant]
     Active Substance: PIMOBENDAN
     Indication: Product used for unknown indication
     Route: 048
  4. TOLVAPTAN [Concomitant]
     Active Substance: TOLVAPTAN
     Indication: Cardiac failure
     Route: 048
  5. LANSOPRAZOLE [Concomitant]
     Active Substance: LANSOPRAZOLE
     Indication: Product used for unknown indication
     Route: 048
  6. ASPIRIN [Concomitant]
     Active Substance: ASPIRIN
     Indication: Product used for unknown indication
     Route: 048
  7. FUROSEMIDE [Concomitant]
     Active Substance: FUROSEMIDE
     Indication: Product used for unknown indication
     Route: 048

REACTIONS (2)
  - Cardiac failure [Recovered/Resolved]
  - Dyspnoea [Recovered/Resolved]
